FAERS Safety Report 17652723 (Version 3)
Quarter: 2020Q3

REPORT INFORMATION
  Report Type: Spontaneous
  Country: AU (occurrence: AU)
  Receive Date: 20200409
  Receipt Date: 20200803
  Transmission Date: 20201102
  Serious: Yes (Hospitalization)
  Sender: FDA-Public Use
  Company Number: AU-TASMAN PHARMA, INC.-2020TSM00202

PATIENT
  Sex: Male

DRUGS (18)
  1. CLOZAPINE. [Suspect]
     Active Substance: CLOZAPINE
     Dosage: 425 MG
     Dates: start: 2019, end: 20191010
  2. CLOZAPINE. [Suspect]
     Active Substance: CLOZAPINE
     Dosage: 150 MG
     Dates: start: 20181207, end: 20181210
  3. CLOZAPINE. [Suspect]
     Active Substance: CLOZAPINE
     Dosage: 425 MG
     Dates: start: 20191011, end: 20191231
  4. CLOZAPINE. [Suspect]
     Active Substance: CLOZAPINE
     Dosage: 450 MG
     Dates: start: 20200409, end: 20200721
  5. CLOZAPINE. [Suspect]
     Active Substance: CLOZAPINE
     Dosage: 300 MG
     Dates: start: 20181231, end: 20190305
  6. CLOZAPINE. [Suspect]
     Active Substance: CLOZAPINE
     Dosage: 450 MG
     Dates: start: 20200722
  7. CLOZAPINE. [Suspect]
     Active Substance: CLOZAPINE
     Dosage: 275 MG
     Dates: start: 20190501, end: 20190521
  8. CLOZAPINE. [Suspect]
     Active Substance: CLOZAPINE
     Dosage: 275 MG
     Dates: start: 20181218, end: 20181223
  9. CLOZAPINE. [Suspect]
     Active Substance: CLOZAPINE
     Dosage: 250 MG
     Dates: start: 20190306, end: 201904
  10. CLOZAPINE. [Suspect]
     Active Substance: CLOZAPINE
     Dosage: 350 MG
     Dates: start: 20190625, end: 20190625
  11. CLOZAPINE. [Suspect]
     Active Substance: CLOZAPINE
     Dosage: 450 MG
     Dates: start: 20200101, end: 20200301
  12. CLOZAPINE. [Suspect]
     Active Substance: CLOZAPINE
     Dosage: 250 MG
     Dates: start: 201904, end: 20190430
  13. CLOZAPINE. [Suspect]
     Active Substance: CLOZAPINE
     Dosage: 225 MG
     Dates: start: 20181211, end: 20181217
  14. CLOZAPINE. [Suspect]
     Active Substance: CLOZAPINE
     Dosage: 325 MG
     Dates: start: 20190522, end: 20190624
  15. CLOZAPINE. [Suspect]
     Active Substance: CLOZAPINE
     Dosage: 400 MG
     Dates: start: 20190626, end: 2019
  16. CLOZAPINE. [Suspect]
     Active Substance: CLOZAPINE
     Dosage: 400 MG
     Dates: start: 202003, end: 20200408
  17. CLOZAPINE. [Suspect]
     Active Substance: CLOZAPINE
     Dosage: 450 MG
     Dates: start: 20200302, end: 202003
  18. CLOZAPINE. [Suspect]
     Active Substance: CLOZAPINE
     Dosage: 325 MG
     Dates: start: 20181224, end: 20181230

REACTIONS (1)
  - Hospitalisation [Not Recovered/Not Resolved]
